FAERS Safety Report 18341204 (Version 1)
Quarter: 2020Q4

REPORT INFORMATION
  Report Type: Spontaneous
  Country: BE (occurrence: BE)
  Receive Date: 20201003
  Receipt Date: 20201003
  Transmission Date: 20210113
  Serious: Yes (Other)
  Sender: FDA-Public Use
  Company Number: BE-LUPIN PHARMACEUTICALS INC.-2020-05004

PATIENT
  Age: 26 Year
  Sex: Female

DRUGS (5)
  1. UREA. [Concomitant]
     Active Substance: UREA
     Indication: PSORIASIS
     Dosage: UNK UNK, QD, 10 %
     Route: 061
  2. ACITRETIN. [Concomitant]
     Active Substance: ACITRETIN
     Indication: PSORIASIS
     Dosage: 20 MILLIGRAM, QD
     Route: 048
  3. CALCIPOTRIOL [Concomitant]
     Active Substance: CALCIPOTRIENE
     Indication: PSORIASIS
     Dosage: UNK, QD, FOR SEVERAL WEEKS
     Route: 061
  4. CLOBETASOL PROPIONATE OINTMENT [Suspect]
     Active Substance: CLOBETASOL PROPIONATE
     Indication: PSORIASIS
     Dosage: UNK UNK, QD, 0.05 %
     Route: 061
  5. BETAMETHASONE OINTMENT [Suspect]
     Active Substance: BETAMETHASONE
     Indication: PSORIASIS
     Dosage: UNK UNK, QD
     Route: 061

REACTIONS (1)
  - Drug ineffective [Unknown]
